FAERS Safety Report 5478027-0 (Version None)
Quarter: 2007Q4

REPORT INFORMATION
  Report Type: 
  Country: None (occurrence: None)
  Receive Date: 20071005
  Receipt Date: 20070924
  Transmission Date: 20080405
  Serious: Yes (Hospitalization)
  Sender: FDA-Public Use
  Company Number: US-AMGEN-US244623

PATIENT
  Sex: Male

DRUGS (4)
  1. NEUPOGEN [Suspect]
     Indication: PERIPHERAL BLOOD STEM CELL APHERESIS
     Route: 065
     Dates: start: 20070901, end: 20070901
  2. NEULASTA [Suspect]
     Indication: CHEMOTHERAPY
     Route: 065
     Dates: start: 20030901
  3. CYTOXAN [Concomitant]
     Route: 065
     Dates: start: 20070901
  4. DECADRON [Concomitant]
     Route: 065
     Dates: start: 20070901

REACTIONS (9)
  - ABASIA [None]
  - ABDOMINAL DISTENSION [None]
  - BLOOD STEM CELL HARVEST FAILURE [None]
  - BONE PAIN [None]
  - DYSPNOEA [None]
  - PULMONARY OEDEMA [None]
  - RESPIRATORY TRACT INFECTION [None]
  - SWELLING [None]
  - WEIGHT INCREASED [None]
